FAERS Safety Report 5923555-4 (Version None)
Quarter: 2008Q4

REPORT INFORMATION
  Report Type: 
  Country: None (occurrence: None)
  Receive Date: 20081020
  Receipt Date: 20081009
  Transmission Date: 20090506
  Serious: Yes (Hospitalization, Other)
  Sender: FDA-Public Use
  Company Number: US-AMGEN-QUU312514

PATIENT
  Sex: Female

DRUGS (1)
  1. ENBREL [Suspect]
     Indication: RHEUMATOID ARTHRITIS
     Route: 058
     Dates: start: 20041130

REACTIONS (8)
  - BACK PAIN [None]
  - DYSPNOEA [None]
  - FATIGUE [None]
  - OVARIAN CYST [None]
  - OVARIAN NEOPLASM [None]
  - PLEURAL EFFUSION [None]
  - POLLAKIURIA [None]
  - VAGINAL HAEMORRHAGE [None]
